FAERS Safety Report 8999646 (Version 1)
Quarter: 2013Q1

REPORT INFORMATION
  Report Type: Spontaneous
  Country: FR (occurrence: FR)
  Receive Date: 20130102
  Receipt Date: 20130102
  Transmission Date: 20140127
  Serious: Yes (Other)
  Sender: FDA-Public Use
  Company Number: FR-ASTRAZENECA-2012SE95289

PATIENT
  Age: 23699 Day
  Sex: Male

DRUGS (3)
  1. DIPRIVAN [Suspect]
     Indication: ANAESTHESIA
     Dosage: UNKNOWN DOSE ONCE/SINGLE ADMINISTRATION
     Route: 042
     Dates: start: 20121011, end: 20121011
  2. CELOCURINE [Suspect]
     Indication: ANAESTHESIA
     Dosage: UNKNOWN DOSE ONCE/SINGLE ADMINISTRATION
     Route: 042
     Dates: start: 20121011, end: 20121011
  3. SUFENTANYL [Suspect]
     Indication: ANAESTHESIA
     Dosage: UNKNOWN DOSE ONCE/SINGLE ADMINISTRATION
     Route: 042
     Dates: start: 20121011, end: 20121011

REACTIONS (2)
  - Cardiac arrest [Unknown]
  - Hypersensitivity [Unknown]
